FAERS Safety Report 25548234 (Version 1)
Quarter: 2025Q3

REPORT INFORMATION
  Report Type: Spontaneous
  Country: US (occurrence: US)
  Receive Date: 20250714
  Receipt Date: 20250714
  Transmission Date: 20251020
  Serious: Yes (Other)
  Sender: MYLAN
  Company Number: US-MYLANLABS-2025M1055661

PATIENT
  Age: 30 Year
  Sex: Male

DRUGS (55)
  1. TACROLIMUS [Suspect]
     Active Substance: TACROLIMUS
     Indication: Autoimmune enteropathy
     Dosage: 1 MILLIGRAM, QD,EVERY MORNING
  2. TACROLIMUS [Suspect]
     Active Substance: TACROLIMUS
     Indication: Autoimmune hepatitis
  3. TACROLIMUS [Suspect]
     Active Substance: TACROLIMUS
     Indication: Immune-mediated endocrinopathy
  4. CYCLOSPORINE [Suspect]
     Active Substance: CYCLOSPORINE
     Indication: Sjogren^s syndrome
  5. CYCLOSPORINE [Suspect]
     Active Substance: CYCLOSPORINE
     Indication: Immune-mediated endocrinopathy
  6. HYDROCORTISONE [Suspect]
     Active Substance: HYDROCORTISONE
     Indication: Adrenal insufficiency
  7. METHYLPREDNISOLONE [Suspect]
     Active Substance: METHYLPREDNISOLONE
     Indication: Adrenal insufficiency
  8. METHYLPREDNISOLONE [Suspect]
     Active Substance: METHYLPREDNISOLONE
     Indication: Immune-mediated endocrinopathy
  9. BUDESONIDE [Suspect]
     Active Substance: BUDESONIDE
     Indication: Autoimmune enteropathy
  10. BUDESONIDE [Suspect]
     Active Substance: BUDESONIDE
     Indication: Immune-mediated endocrinopathy
  11. MYCOPHENOLIC ACID [Suspect]
     Active Substance: MYCOPHENOLIC ACID
     Indication: Immune-mediated endocrinopathy
  12. MYCOPHENOLIC ACID [Suspect]
     Active Substance: MYCOPHENOLIC ACID
     Indication: Autoimmune enteropathy
  13. MYCOPHENOLATE MOFETIL [Suspect]
     Active Substance: MYCOPHENOLATE MOFETIL
     Indication: Immune-mediated endocrinopathy
     Dosage: 250 MILLIGRAM, BID
  14. UPADACITINIB [Suspect]
     Active Substance: UPADACITINIB
     Indication: Immune-mediated endocrinopathy
     Dosage: 45 MILLIGRAM, QD
  15. FLUDROCORTISONE [Suspect]
     Active Substance: FLUDROCORTISONE
     Indication: Adrenal insufficiency
  16. AZATHIOPRINE [Suspect]
     Active Substance: AZATHIOPRINE
     Indication: Immune-mediated endocrinopathy
  17. HYDROXYCHLOROQUINE [Suspect]
     Active Substance: HYDROXYCHLOROQUINE
     Indication: Immune-mediated endocrinopathy
  18. IMMUNE GLOBULIN NOS [Suspect]
     Active Substance: IMMUNE GLOBULIN NOS
     Indication: Immune-mediated endocrinopathy
  19. IMMUNE GLOBULIN NOS [Suspect]
     Active Substance: IMMUNE GLOBULIN NOS
     Indication: Autoimmune enteropathy
  20. IMMUNE GLOBULIN NOS [Suspect]
     Active Substance: IMMUNE GLOBULIN NOS
     Indication: Autoimmune enteropathy
  21. FLUCONAZOLE [Concomitant]
     Active Substance: FLUCONAZOLE
     Indication: Mucocutaneous candidiasis
  22. FLUCONAZOLE [Concomitant]
     Active Substance: FLUCONAZOLE
     Indication: Oesophageal candidiasis
  23. NYSTATIN [Concomitant]
     Active Substance: NYSTATIN
     Indication: Mucocutaneous candidiasis
  24. NYSTATIN [Concomitant]
     Active Substance: NYSTATIN
     Indication: Oesophageal candidiasis
  25. RIFAXIMIN [Concomitant]
     Active Substance: RIFAXIMIN
     Indication: Mucocutaneous candidiasis
  26. RIFAXIMIN [Concomitant]
     Active Substance: RIFAXIMIN
     Indication: Oesophageal candidiasis
  27. RIFAXIMIN [Concomitant]
     Active Substance: RIFAXIMIN
     Indication: Gastritis
  28. RIFAXIMIN [Concomitant]
     Active Substance: RIFAXIMIN
     Indication: Enteritis
  29. GENTAMICIN [Concomitant]
     Active Substance: GENTAMICIN
     Indication: Mucocutaneous candidiasis
  30. GENTAMICIN [Concomitant]
     Active Substance: GENTAMICIN
     Indication: Oesophageal candidiasis
  31. INSULIN NOS [Concomitant]
     Active Substance: INSULIN NOS
     Indication: Diabetes mellitus
  32. SALINE [Concomitant]
     Active Substance: SODIUM CHLORIDE
     Indication: Mucocutaneous candidiasis
  33. SALINE [Concomitant]
     Active Substance: SODIUM CHLORIDE
     Indication: Oesophageal candidiasis
  34. VANCOMYCIN [Concomitant]
     Active Substance: VANCOMYCIN
     Indication: Mucocutaneous candidiasis
  35. VANCOMYCIN [Concomitant]
     Active Substance: VANCOMYCIN
     Indication: Oesophageal candidiasis
  36. VANCOMYCIN [Concomitant]
     Active Substance: VANCOMYCIN
     Indication: Gastritis
  37. VANCOMYCIN [Concomitant]
     Active Substance: VANCOMYCIN
     Indication: Enteritis
  38. VANCOMYCIN [Concomitant]
     Active Substance: VANCOMYCIN
     Indication: Functional gastrointestinal disorder
  39. SULFAMETHOXAZOLE\TRIMETHOPRIM [Concomitant]
     Active Substance: SULFAMETHOXAZOLE\TRIMETHOPRIM
     Indication: Mucocutaneous candidiasis
  40. SULFAMETHOXAZOLE\TRIMETHOPRIM [Concomitant]
     Active Substance: SULFAMETHOXAZOLE\TRIMETHOPRIM
     Indication: Oesophageal candidiasis
  41. AMPHOTERICIN B [Concomitant]
     Active Substance: AMPHOTERICIN B
     Indication: Mucocutaneous candidiasis
  42. AMPHOTERICIN B [Concomitant]
     Active Substance: AMPHOTERICIN B
     Indication: Oesophageal candidiasis
  43. CALCIUM [Concomitant]
     Active Substance: CALCIUM
     Indication: Hypoparathyroidism
  44. VITAMIN D [Concomitant]
     Active Substance: VITAMIN D NOS
     Indication: Hypoparathyroidism
  45. ESOMEPRAZOLE [Concomitant]
     Active Substance: ESOMEPRAZOLE
     Indication: Gastritis
  46. ESOMEPRAZOLE [Concomitant]
     Active Substance: ESOMEPRAZOLE
     Indication: Enteritis
  47. ESOMEPRAZOLE [Concomitant]
     Active Substance: ESOMEPRAZOLE
     Indication: Functional gastrointestinal disorder
  48. URSODIOL [Concomitant]
     Active Substance: URSODIOL
     Indication: Gastritis
  49. URSODIOL [Concomitant]
     Active Substance: URSODIOL
     Indication: Enteritis
  50. URSODIOL [Concomitant]
     Active Substance: URSODIOL
     Indication: Functional gastrointestinal disorder
  51. COLESEVELAM [Concomitant]
     Active Substance: COLESEVELAM
     Indication: Gastritis
  52. COLESEVELAM [Concomitant]
     Active Substance: COLESEVELAM
     Indication: Enteritis
  53. COLESEVELAM [Concomitant]
     Active Substance: COLESEVELAM
     Indication: Functional gastrointestinal disorder
  54. IRON [Concomitant]
     Active Substance: IRON
     Indication: Malnutrition
  55. IRON [Concomitant]
     Active Substance: IRON
     Indication: Iron deficiency anaemia

REACTIONS (6)
  - Nephropathy toxic [Unknown]
  - Type 1 diabetes mellitus [Recovering/Resolving]
  - Monogenic diabetes [Recovering/Resolving]
  - Cataract [Unknown]
  - Drug ineffective [Unknown]
  - Off label use [Unknown]
